FAERS Safety Report 13175528 (Version 1)
Quarter: 2017Q1

REPORT INFORMATION
  Report Type: Spontaneous
  Country: BE (occurrence: BE)
  Receive Date: 20170201
  Receipt Date: 20170201
  Transmission Date: 20170428
  Serious: Yes (Other)
  Sender: FDA-Public Use
  Company Number: BE-PFIZER INC-2017045234

PATIENT
  Age: 67 Year
  Sex: Male
  Weight: 70 kg

DRUGS (11)
  1. MOXON [Concomitant]
     Dosage: 0.4 MG, QD
  2. SORBISTERIT [Concomitant]
     Dosage: UNK, QD
  3. NOBITEN /01339101/ [Concomitant]
     Active Substance: NEBIVOLOL
     Dosage: 5 MG, QD
  4. FOLAVIT [Concomitant]
     Dosage: UNK, QD
  5. ARANESP [Concomitant]
     Active Substance: DARBEPOETIN ALFA
     Dosage: UNK, MONTHLY
     Route: 058
  6. TRIBVIT [Concomitant]
     Dosage: UNK, QD
  7. PANTOMED [Suspect]
     Active Substance: DEXPANTHENOL
     Dosage: 40 MG, QD
     Route: 065
  8. ASAFLOW [Suspect]
     Active Substance: ASPIRIN
     Indication: PRODUCT USED FOR UNKNOWN INDICATION
     Dosage: 80 MG, QD
     Route: 065
  9. BICARBONATE [Concomitant]
     Active Substance: BICARBONATE ION
     Dosage: 1 G, QD
  10. VASEXTEN [Concomitant]
     Active Substance: BARNIDIPINE HYDROCHLORIDE
     Dosage: 20 MG, QD
  11. CALCIUM CARBONATE. [Concomitant]
     Active Substance: CALCIUM CARBONATE
     Dosage: 1 G, QD

REACTIONS (1)
  - Renal failure [Unknown]
